FAERS Safety Report 4538826-6 (Version None)
Quarter: 2005Q1

REPORT INFORMATION
  Report Type: 
  Country: None (occurrence: None)
  Receive Date: 20041223
  Receipt Date: 20040917
  Transmission Date: 20050727
  Serious: No
  Sender: FDA-Public Use
  Company Number: US-JNJFOC-20040906705

PATIENT

DRUGS (4)
  1. ORTHO EVRA [Suspect]
     Indication: CONTRACEPTION
     Dosage: 1 DOSE(S) 3 IN 4 WEEK, TRANSDERMAL
     Route: 062
     Dates: start: 20030801
  2. PROZAC [Concomitant]
  3. LAMICTAL [Concomitant]
  4. VIOXX [Concomitant]

REACTIONS (1)
  - APPLICATION SITE IRRITATION [None]
